FAERS Safety Report 8862331 (Version 3)
Quarter: 2013Q1

REPORT INFORMATION
  Report Type: Spontaneous
  Country: JP (occurrence: JP)
  Receive Date: 20121026
  Receipt Date: 20130102
  Transmission Date: 20140127
  Serious: Yes (Other)
  Sender: FDA-Public Use
  Company Number: JP-JNJFOC-20121012960

PATIENT
  Age: 7 Decade
  Sex: Female

DRUGS (4)
  1. TRAMCET [Suspect]
     Indication: PAIN
     Dosage: 1 PER 1 DAY
     Route: 048
     Dates: start: 20121017, end: 20121018
  2. CELECOX [Concomitant]
     Indication: PAIN
     Route: 048
     Dates: start: 20120627, end: 20121018
  3. REBAMIPIDE [Concomitant]
     Indication: PAIN
     Route: 048
     Dates: start: 20120627, end: 20121018
  4. LOXONIN [Concomitant]
     Indication: PRODUCT USED FOR UNKNOWN INDICATION
     Route: 062
     Dates: start: 20120627, end: 20121018

REACTIONS (3)
  - Body temperature decreased [Recovered/Resolved]
  - Myocardial ischaemia [Recovered/Resolved]
  - Inappropriate schedule of drug administration [Unknown]
